FAERS Safety Report 8337653-1 (Version None)
Quarter: 2012Q2

REPORT INFORMATION
  Report Type: 
  Country: None (occurrence: None)
  Receive Date: 20120504
  Receipt Date: 20120504
  Transmission Date: 20120825
  Serious: Yes (Other)
  Sender: FDA-Public Use
  Company Number: None

PATIENT
  Age: 29 Year
  Sex: Female
  Weight: 54.431 kg

DRUGS (1)
  1. MIRENA [Suspect]
     Indication: CONTRACEPTION
     Dates: start: 20110621, end: 20120303

REACTIONS (5)
  - DEVICE DISLOCATION [None]
  - UTERINE CERVICAL PAIN [None]
  - POST PROCEDURAL COMPLICATION [None]
  - UTERINE PERFORATION [None]
  - AMENORRHOEA [None]
